FAERS Safety Report 22594526 (Version 1)
Quarter: 2023Q2

REPORT INFORMATION
  Report Type: Spontaneous
  Country: US (occurrence: US)
  Receive Date: 20230613
  Receipt Date: 20230613
  Transmission Date: 20230722
  Serious: Yes (Other)
  Sender: FDA-Public Use
  Company Number: US-MIRATI-MT2023PM04168

PATIENT

DRUGS (6)
  1. KRAZATI [Suspect]
     Active Substance: ADAGRASIB
     Indication: Lung neoplasm malignant
     Dosage: 600 MG, BID
     Route: 048
     Dates: start: 20230408, end: 202304
  2. KRAZATI [Suspect]
     Active Substance: ADAGRASIB
     Dosage: 400 MG, BID
     Route: 048
     Dates: start: 20230413, end: 202304
  3. KRAZATI [Suspect]
     Active Substance: ADAGRASIB
     Dosage: 200 MG, 1 TABLET IN AM, 2 TABLETS IN PM
     Route: 048
     Dates: start: 20230423, end: 20230608
  4. CELLCEPT [Concomitant]
     Active Substance: MYCOPHENOLATE MOFETIL
  5. CELLCEPT [Concomitant]
     Active Substance: MYCOPHENOLATE MOFETIL
  6. CARBOPLATIN [Concomitant]
     Active Substance: CARBOPLATIN

REACTIONS (5)
  - Pneumonitis [Not Recovered/Not Resolved]
  - Pleural effusion [Not Recovered/Not Resolved]
  - Pleuritic pain [Not Recovered/Not Resolved]
  - Dyspnoea [Not Recovered/Not Resolved]
  - CD4 lymphocytes increased [Not Recovered/Not Resolved]

NARRATIVE: CASE EVENT DATE: 20230606
